FAERS Safety Report 9107796 (Version 1)
Quarter: 2013Q1

REPORT INFORMATION
  Report Type: Spontaneous
  Country: AU (occurrence: AU)
  Receive Date: 20130221
  Receipt Date: 20130221
  Transmission Date: 20140127
  Serious: Yes (Other)
  Sender: FDA-Public Use
  Company Number: AU-BIOGENIDEC-2013BI015690

PATIENT
  Age: 55 Year
  Sex: Male

DRUGS (1)
  1. AVONEX [Suspect]
     Indication: MULTIPLE SCLEROSIS
     Route: 030
     Dates: start: 2010

REACTIONS (4)
  - Benign neoplasm of thyroid gland [Unknown]
  - Pneumothorax [Recovered/Resolved]
  - Viral infection [Recovered/Resolved]
  - General symptom [Unknown]
